FAERS Safety Report 9990092 (Version 3)
Quarter: 2013Q4

REPORT INFORMATION
  Report Type: Spontaneous
  Country: JP (occurrence: None)
  Receive Date: 20131118
  Receipt Date: 20131218
  Transmission Date: 20140711
  Serious: Yes (Life-Threatening, Hospitalization)
  Sender: FDA-Public Use
  Company Number: SYM-2013-12698

PATIENT
  Age: 34 Year
  Sex: Female
  Weight: 38 kg

DRUGS (9)
  1. CHOREAZINE [Suspect]
     Indication: HUNTINGTON^S DISEASE
     Route: 048
     Dates: start: 20130624, end: 20131101
  2. PZC (PERPHENAZINE MALEATE) (PERPHENAZINE MALEATE) [Concomitant]
  3. SERENACE (HALOPERIDOL) (HALOPERIDOL) [Concomitant]
  4. CEFZON (CEFDINIR) (CEFDINIR) [Concomitant]
  5. LOXONIN (LOXOPROFEN SODIUM) (LOXOPROFEN SODIUM) [Concomitant]
  6. LENDORMIN D (BROTIZOLAM) (BROTIZOLAM) [Concomitant]
  7. GASTER D (FAMOTIDINE) (FAMOTIDINE) [Concomitant]
  8. ROZEREM (RAMELTEON) (RAMELTEON) [Concomitant]
  9. PL (PA) (CAFFEINE, SALICYLAMIDE, PARACETAMOL, PROMETHAZINE METHYLENE DISALICYLATE) [Concomitant]

REACTIONS (6)
  - Altered state of consciousness [None]
  - Blood creatine phosphokinase increased [None]
  - Oculogyric crisis [None]
  - Neuroleptic malignant syndrome [None]
  - Renal failure acute [None]
  - Platelet count decreased [None]
